FAERS Safety Report 9912911 (Version 1)
Quarter: 2014Q1

REPORT INFORMATION
  Report Type: Spontaneous
  Country: US (occurrence: None)
  Receive Date: 20140218
  Receipt Date: 20140218
  Transmission Date: 20141002
  Serious: Yes (Hospitalization)
  Sender: FDA-Public Use
  Company Number: None

PATIENT
  Age: 57 Year
  Sex: Female
  Weight: 65.77 kg

DRUGS (3)
  1. LINZESS [Suspect]
     Indication: INFLAMMATORY BOWEL DISEASE
  2. LINZESS [Suspect]
     Indication: ABDOMINAL DISTENSION
  3. LINZESS [Suspect]
     Indication: CONSTIPATION

REACTIONS (6)
  - Abdominal pain upper [None]
  - Nausea [None]
  - Diarrhoea [None]
  - Abdominal distension [None]
  - Oesophagitis [None]
  - Medical diet [None]
